FAERS Safety Report 20510463 (Version 13)
Quarter: 2023Q2

REPORT INFORMATION
  Report Type: Spontaneous
  Country: US (occurrence: US)
  Receive Date: 20220224
  Receipt Date: 20230412
  Transmission Date: 20230722
  Serious: No
  Sender: FDA-Public Use
  Company Number: US-Blueprint Medicines Corporation-SP-US-2022-000456

PATIENT
  Age: 71 Year
  Sex: Male

DRUGS (8)
  1. AYVAKIT [Suspect]
     Active Substance: AVAPRITINIB
     Indication: Systemic mastocytosis
     Route: 048
     Dates: start: 20220103
  2. AYVAKIT [Suspect]
     Active Substance: AVAPRITINIB
     Indication: Plasmacytoma
     Route: 048
     Dates: start: 20220103
  3. AYVAKIT [Suspect]
     Active Substance: AVAPRITINIB
     Indication: Malignant mast cell neoplasm
     Route: 048
     Dates: start: 20220103
  4. AYVAKIT [Suspect]
     Active Substance: AVAPRITINIB
     Route: 065
     Dates: start: 20230203
  5. AYVAKIT [Suspect]
     Active Substance: AVAPRITINIB
     Route: 048
  6. PRED FORTE [Concomitant]
     Active Substance: PREDNISOLONE ACETATE
     Indication: Product used for unknown indication
     Route: 065
  7. NAPROXEN [Concomitant]
     Active Substance: NAPROXEN
     Indication: Product used for unknown indication
     Route: 065
  8. PANTOPRAZOLE [Concomitant]
     Active Substance: PANTOPRAZOLE
     Indication: Product used for unknown indication
     Route: 065

REACTIONS (10)
  - Nasal congestion [Unknown]
  - Eye swelling [Not Recovered/Not Resolved]
  - Gait disturbance [Not Recovered/Not Resolved]
  - Pain in extremity [Not Recovered/Not Resolved]
  - Arthralgia [Recovered/Resolved]
  - Periorbital swelling [Unknown]
  - Red blood cell count decreased [Not Recovered/Not Resolved]
  - Fluid retention [Recovered/Resolved]
  - Swelling face [Not Recovered/Not Resolved]
  - Sinus congestion [Not Recovered/Not Resolved]

NARRATIVE: CASE EVENT DATE: 20220203
